FAERS Safety Report 25391941 (Version 1)
Quarter: 2025Q2

REPORT INFORMATION
  Report Type: Spontaneous
  Country: CN (occurrence: CN)
  Receive Date: 20250603
  Receipt Date: 20250603
  Transmission Date: 20250717
  Serious: Yes (Hospitalization)
  Sender: BAYER HEALTHCARE PHARMACEUTICALS INC.
  Company Number: CN-BAYER-2025A073894

PATIENT
  Age: 72 Year
  Sex: Male
  Weight: 70 kg

DRUGS (2)
  1. KERENDIA [Suspect]
     Active Substance: FINERENONE
     Indication: Proteinuria
     Dosage: 10 MG, QD
     Route: 048
     Dates: start: 20250414, end: 20250521
  2. KERENDIA [Suspect]
     Active Substance: FINERENONE
     Indication: Proteinuria
     Dosage: 10 MG, QD
     Route: 048
     Dates: start: 20250525, end: 20250526

REACTIONS (2)
  - Asthenia [Recovering/Resolving]
  - Muscular weakness [Recovering/Resolving]

NARRATIVE: CASE EVENT DATE: 20250101
